FAERS Safety Report 10402041 (Version 1)
Quarter: 2014Q3

REPORT INFORMATION
  Report Type: Spontaneous
  Country: FR (occurrence: FR)
  Receive Date: 20140822
  Receipt Date: 20140822
  Transmission Date: 20150326
  Serious: Yes (Disabling, Other)
  Sender: FDA-Public Use
  Company Number: FR-MYLAN-2014M1001957

PATIENT

DRUGS (2)
  1. TRIMEBUTINE [Concomitant]
     Active Substance: TRIMEBUTINE
     Route: 065
  2. BROMOCRIPTINE [Suspect]
     Active Substance: BROMOCRIPTINE
     Indication: SUPPRESSED LACTATION
     Route: 048

REACTIONS (5)
  - Myocardial infarction [Unknown]
  - Blindness [Unknown]
  - Arteriospasm coronary [Unknown]
  - Central nervous system lesion [Unknown]
  - Quadriplegia [Unknown]
